FAERS Safety Report 4916885-6 (Version None)
Quarter: 2006Q1

REPORT INFORMATION
  Report Type: 
  Country: None (occurrence: None)
  Receive Date: 20060113
  Receipt Date: 20051021
  Transmission Date: 20060701
  Serious: No
  Sender: FDA-Public Use
  Company Number: 2005SP002440

PATIENT
  Age: 79 Year
  Sex: Female
  Weight: 51.2565 kg

DRUGS (5)
  1. LUNESTA [Suspect]
     Indication: INSOMNIA
     Dosage: SEE IMAGE
     Route: 048
     Dates: start: 20050801, end: 20050101
  2. LUNESTA [Suspect]
     Indication: INSOMNIA
     Dosage: SEE IMAGE
     Route: 048
     Dates: start: 20050820, end: 20050801
  3. AMLODIPINE [Concomitant]
  4. ACTONEL [Concomitant]
  5. VITAMINS [Concomitant]

REACTIONS (8)
  - ANXIETY [None]
  - DYSGEUSIA [None]
  - HALLUCINATION [None]
  - HEADACHE [None]
  - INSOMNIA [None]
  - MEMORY IMPAIRMENT [None]
  - RESTLESSNESS [None]
  - SOMNOLENCE [None]
